FAERS Safety Report 4548515-X (Version None)
Quarter: 2005Q1

REPORT INFORMATION
  Report Type: 
  Country: None (occurrence: None)
  Receive Date: 20050110
  Receipt Date: 20041228
  Transmission Date: 20050727
  Serious: Yes (Other)
  Sender: FDA-Public Use
  Company Number: CH-GLAXOSMITHKLINE-B0363381A

PATIENT
  Age: 83 Year
  Sex: Female
  Weight: 70 kg

DRUGS (7)
  1. SERETIDE [Suspect]
     Route: 055
     Dates: start: 20040928, end: 20041007
  2. PODOMEXEF [Suspect]
     Dosage: 200MG TWICE PER DAY
     Route: 048
     Dates: start: 20040928, end: 20041007
  3. KLACID [Suspect]
     Dosage: 500MG TWICE PER DAY
     Route: 048
     Dates: start: 20040924, end: 20040928
  4. NEURONTIN [Concomitant]
     Indication: TRIGEMINAL NEURALGIA
     Dosage: 400MG THREE TIMES PER DAY
     Route: 048
     Dates: start: 20020101
  5. FLUDEX [Concomitant]
     Dosage: 1.5MG PER DAY
     Route: 048
  6. PRAVASTATIN SODIUM [Concomitant]
     Indication: ILL-DEFINED DISORDER
     Dosage: 40MG PER DAY
     Route: 048
  7. METFORMIN HCL [Concomitant]
     Indication: DIABETES MELLITUS
     Dosage: 500MG THREE TIMES PER DAY
     Route: 048

REACTIONS (2)
  - AGEUSIA [None]
  - ANOSMIA [None]
